FAERS Safety Report 5771900-5 (Version None)
Quarter: 2008Q2

REPORT INFORMATION
  Report Type: 
  Country: None (occurrence: None)
  Receive Date: 20080613
  Receipt Date: 20080606
  Transmission Date: 20081010
  Serious: Yes (Death)
  Sender: FDA-Public Use
  Company Number: B0524869A

PATIENT
  Age: 48 Year
  Sex: Female

DRUGS (5)
  1. AROPAX [Suspect]
     Indication: DRUG USE FOR UNKNOWN INDICATION
     Route: 048
  2. PHENERGAN [Suspect]
     Indication: DRUG USE FOR UNKNOWN INDICATION
     Route: 065
  3. MORPHINE [Concomitant]
  4. CODEINE SUL TAB [Concomitant]
  5. UNKNOWN DRUG [Concomitant]

REACTIONS (1)
  - DEATH [None]
